FAERS Safety Report 4807745-X (Version None)
Quarter: 2005Q4

REPORT INFORMATION
  Report Type: 
  Country: None (occurrence: None)
  Receive Date: 20051019
  Receipt Date: 20050912
  Transmission Date: 20060501
  Serious: Yes (Life-Threatening)
  Sender: FDA-Public Use
  Company Number: 2005RR-00795

PATIENT
  Age: 86 Year
  Sex: Male

DRUGS (7)
  1. ASPIRIN [Suspect]
     Dosage: 150 MG, QD, ORAL
     Route: 048
  2. WARFARIN SODIUM [Suspect]
     Indication: TRANSIENT ISCHAEMIC ATTACK
     Dosage: QD, ORAL
     Route: 048
  3. FRUSEMIDE [Concomitant]
  4. LISINOPRIL TABLET [Concomitant]
  5. SIMVASTATIN FILM COATED TABLET (SIMVASTATIN) [Concomitant]
  6. FYBOGEL [Concomitant]
  7. LEUPRORELIN [Concomitant]

REACTIONS (2)
  - GASTROINTESTINAL HAEMORRHAGE [None]
  - SYNCOPE [None]
